FAERS Safety Report 16577156 (Version 1)
Quarter: 2019Q3

REPORT INFORMATION
  Report Type: Spontaneous
  Country: FR (occurrence: FR)
  Receive Date: 20190716
  Receipt Date: 20190716
  Transmission Date: 20191004
  Serious: No
  Sender: FDA-Public Use
  Company Number: FR-BEH-2019104331

PATIENT
  Age: 18 Year
  Sex: Male

DRUGS (1)
  1. HIZENTRA [Suspect]
     Active Substance: HUMAN IMMUNOGLOBULIN G
     Indication: IPEX SYNDROME
     Dosage: 8 GRAM, QW
     Route: 058
     Dates: start: 2016

REACTIONS (3)
  - Infusion site reaction [Not Recovered/Not Resolved]
  - No adverse event [Unknown]
  - Product use in unapproved indication [Unknown]

NARRATIVE: CASE EVENT DATE: 201906
